FAERS Safety Report 7298091-6 (Version None)
Quarter: 2011Q1

REPORT INFORMATION
  Report Type: 
  Country: None (occurrence: None)
  Receive Date: 20110217
  Receipt Date: 20110214
  Transmission Date: 20110831
  Serious: Yes (Death, Other)
  Sender: FDA-Public Use
  Company Number: PHHY2011BR12182

PATIENT
  Sex: Female
  Weight: 70 kg

DRUGS (4)
  1. DIAZEPAM [Concomitant]
     Indication: SLEEP DISORDER
     Dosage: 1 TABLET A DAY
     Route: 048
  2. SUSTRATE [Concomitant]
     Indication: CHEST PAIN
     Dosage: 1 DF, (1 TABLET TWICE A DAY )
     Route: 048
  3. DIOVAN [Suspect]
     Indication: HYPERTENSION
     Dosage: 80 MG, BID (1 TABLET TWICE A DAY )
     Route: 048
  4. FORASEQ [Suspect]
     Indication: PULMONARY OEDEMA
     Dosage: FORMOTEROL FUMARATE 12MCG AND BUDESONIDE 400MCG (1 INHALATION OF EACH TREATMENT 3 TIMES A DAY )
     Route: 048

REACTIONS (4)
  - ISCHAEMIC STROKE [None]
  - DEATH [None]
  - MOVEMENT DISORDER [None]
  - CEREBROVASCULAR ACCIDENT [None]
